FAERS Safety Report 12393110 (Version 1)
Quarter: 2016Q2

REPORT INFORMATION
  Report Type: Spontaneous
  Country: US (occurrence: None)
  Receive Date: 20160520
  Receipt Date: 20160520
  Transmission Date: 20160815
  Serious: Yes (Hospitalization, Disabling)
  Sender: FDA-Public Use
  Company Number: None

PATIENT
  Age: 35 Year
  Sex: Female
  Weight: 78.02 kg

DRUGS (15)
  1. HCTZ [Concomitant]
     Active Substance: HYDROCHLOROTHIAZIDE
  2. CATAPRES [Concomitant]
     Active Substance: CLONIDINE HYDROCHLORIDE
  3. LISINOPRIL. [Concomitant]
     Active Substance: LISINOPRIL
  4. LUNESTA [Concomitant]
     Active Substance: ESZOPICLONE
  5. CLONIDINE TRANSDERMAL SYSTEM [Suspect]
     Active Substance: CLONIDINE
     Indication: HYPERTENSION
     Dosage: 4 PATCH(ES)  1 FOR SEVEN DAYS  APPLIED TO A SURFACE, USUALLY THE SKIN
     Route: 062
  6. KRISTALOSE [Concomitant]
     Active Substance: LACTULOSE
  7. COREG [Concomitant]
     Active Substance: CARVEDILOL
  8. CLONIDINE. [Concomitant]
     Active Substance: CLONIDINE
  9. PLAVIX [Concomitant]
     Active Substance: CLOPIDOGREL BISULFATE
  10. SLEEPYTIME TEA [Concomitant]
  11. CARDURA [Concomitant]
     Active Substance: DOXAZOSIN MESYLATE
  12. HYDRALAZINE [Concomitant]
     Active Substance: HYDRALAZINE HYDROCHLORIDE
  13. NEXIUM [Concomitant]
     Active Substance: ESOMEPRAZOLE MAGNESIUM
  14. ZOCOR [Concomitant]
     Active Substance: SIMVASTATIN
  15. CLONIDINE HCL 0.3 TABLETS [Suspect]
     Active Substance: CLONIDINE HYDROCHLORIDE
     Indication: HYPERTENSION

REACTIONS (10)
  - Neuralgia [None]
  - Left ventricular hypertrophy [None]
  - Heart rate increased [None]
  - Cerebrovascular accident [None]
  - Hypoaesthesia [None]
  - Muscle spasms [None]
  - Cardiac disorder [None]
  - Migraine [None]
  - Rebound effect [None]
  - Hypertension [None]

NARRATIVE: CASE EVENT DATE: 20070119
